FAERS Safety Report 18577574 (Version 2)
Quarter: 2021Q1

REPORT INFORMATION
  Report Type: Other
  Country: BG (occurrence: BG)
  Receive Date: 20201203
  Receipt Date: 20210204
  Transmission Date: 20210419
  Serious: Yes (Hospitalization)
  Sender: FDA-Public Use
  Company Number: BG-ROCHE-2713411

PATIENT
  Age: 27 Year
  Sex: Male
  Weight: 65 kg

DRUGS (12)
  1. METHYLPREDNISOLONE. [Concomitant]
     Active Substance: METHYLPREDNISOLONE
     Route: 042
     Dates: start: 20201002, end: 20201002
  2. METHYLPREDNISOLONE. [Concomitant]
     Active Substance: METHYLPREDNISOLONE
     Indication: PREMEDICATION
     Route: 042
     Dates: start: 20200312, end: 20200312
  3. ALLERGOSAN [Concomitant]
     Route: 042
     Dates: start: 20200327, end: 20200327
  4. PARACETAMOL [Concomitant]
     Active Substance: ACETAMINOPHEN
     Indication: PREMEDICATION
     Route: 048
     Dates: start: 20200312, end: 20200312
  5. PARACETAMOL [Concomitant]
     Active Substance: ACETAMINOPHEN
     Route: 048
     Dates: start: 20201002, end: 20201002
  6. OCRELIZUMAB. [Suspect]
     Active Substance: OCRELIZUMAB
     Dosage: 300 MG/250 ML
     Route: 042
     Dates: start: 20200327, end: 20200327
  7. ALLERGOSAN [Concomitant]
     Route: 042
     Dates: start: 20201002, end: 20201002
  8. OCRELIZUMAB. [Suspect]
     Active Substance: OCRELIZUMAB
     Dosage: 600 MG/500 ML
     Route: 042
     Dates: start: 20201002, end: 20201002
  9. ALLERGOSAN [Concomitant]
     Indication: PREMEDICATION
     Route: 042
     Dates: start: 20200312, end: 20200312
  10. PARACETAMOL [Concomitant]
     Active Substance: ACETAMINOPHEN
     Route: 048
     Dates: start: 20200327, end: 20200327
  11. METHYLPREDNISOLONE. [Concomitant]
     Active Substance: METHYLPREDNISOLONE
     Route: 042
     Dates: start: 20200327, end: 20200327
  12. OCRELIZUMAB. [Suspect]
     Active Substance: OCRELIZUMAB
     Indication: PRIMARY PROGRESSIVE MULTIPLE SCLEROSIS
     Dosage: 300 MG/250 ML?300 MG AT DAY 0 AND 14, THEN 600 MG IN 6 MONTHS
     Route: 042
     Dates: start: 20200312, end: 20200312

REACTIONS (2)
  - Status epilepticus [Recovered/Resolved]
  - COVID-19 [Recovered/Resolved]

NARRATIVE: CASE EVENT DATE: 20201102
